FAERS Safety Report 8031986-4 (Version None)
Quarter: 2012Q1

REPORT INFORMATION
  Report Type: 
  Country: None (occurrence: None)
  Receive Date: 20120109
  Receipt Date: 20110426
  Transmission Date: 20120608
  Serious: No
  Sender: FDA-Public Use
  Company Number: US-ABBOTT-11P-163-0721929-00

PATIENT
  Sex: Male

DRUGS (7)
  1. NADOLOL [Concomitant]
     Indication: PRODUCT USED FOR UNKNOWN INDICATION
  2. GLUCOSIN [Concomitant]
     Indication: ARTHROPATHY
  3. OTHER SUPPLEMENTS [Concomitant]
     Indication: BONE DISORDER
  4. GLUCOSIN [Concomitant]
     Indication: CHONDROPATHY
  5. VITAMIN TAB [Concomitant]
     Indication: PRODUCT USED FOR UNKNOWN INDICATION
  6. VICODIN [Suspect]
     Indication: PRODUCT USED FOR UNKNOWN INDICATION
  7. LOVASTATIN [Concomitant]
     Indication: BLOOD CHOLESTEROL

REACTIONS (2)
  - ANXIETY [None]
  - INSOMNIA [None]
